FAERS Safety Report 9898030 (Version 1)
Quarter: 2014Q1

REPORT INFORMATION
  Report Type: Spontaneous
  Country: US (occurrence: US)
  Receive Date: 20140214
  Receipt Date: 20140214
  Transmission Date: 20141002
  Serious: Yes (Other)
  Sender: FDA-Public Use
  Company Number: US-ASTRAZENECA-2014SE09208

PATIENT
  Age: 80 Year
  Sex: Female
  Weight: 61.2 kg

DRUGS (3)
  1. METOPROLOL SUCCINATE [Suspect]
     Indication: ATRIAL FIBRILLATION
     Route: 048
  2. METOPROLOL SUCCINATE [Suspect]
     Indication: CEREBROVASCULAR ACCIDENT
     Route: 048
  3. WARFARIN [Concomitant]
     Indication: ANTICOAGULANT THERAPY
     Dates: start: 201209

REACTIONS (2)
  - Cerebrovascular accident [Unknown]
  - Off label use [Unknown]
